FAERS Safety Report 10188659 (Version 1)
Quarter: 2014Q2

REPORT INFORMATION
  Report Type: Spontaneous
  Country: US (occurrence: US)
  Receive Date: 20140522
  Receipt Date: 20140522
  Transmission Date: 20141212
  Serious: No
  Sender: FDA-Public Use
  Company Number: US-SA-2014SA017710

PATIENT
  Age: 78 Year
  Sex: Female

DRUGS (3)
  1. LANTUS SOLOSTAR [Suspect]
     Dosage: TAKEN FROM- A FEW DAYS, DOSE- 4-8 UNITS
     Route: 058
  2. SOLOSTAR [Concomitant]
     Dosage: TAKEN FROM- A FEW DAYS
  3. ALL OTHER THERAPEUTIC PRODUCTS [Concomitant]
     Indication: DIABETES MELLITUS

REACTIONS (4)
  - Gastric disorder [Unknown]
  - Feeling abnormal [Unknown]
  - Visual acuity reduced [Unknown]
  - Fatigue [Unknown]
